FAERS Safety Report 5404907-8 (Version None)
Quarter: 2007Q3

REPORT INFORMATION
  Report Type: 
  Country: None (occurrence: None)
  Receive Date: 20070801
  Receipt Date: 20070801
  Transmission Date: 20080115
  Serious: Yes (Other)
  Sender: FDA-Public Use
  Company Number: None

PATIENT
  Age: 24 Year
  Sex: Male
  Weight: 136.0791 kg

DRUGS (4)
  1. PROAIR HFA [Suspect]
     Indication: ASTHMA
     Dosage: 2 PUFFS  -216MCG-  Q 4-6 H PRN  PO
     Route: 048
  2. ASCORBIC ACID [Concomitant]
  3. SINGULAIR [Concomitant]
  4. BENADRYL [Concomitant]

REACTIONS (7)
  - DEVICE MALFUNCTION [None]
  - DRUG EFFECT DECREASED [None]
  - DYSPNOEA [None]
  - PHARMACEUTICAL PRODUCT COMPLAINT [None]
  - PULMONARY FUNCTION TEST DECREASED [None]
  - SUFFOCATION FEELING [None]
  - WHEEZING [None]
